FAERS Safety Report 9849185 (Version 1)
Quarter: 2014Q1

REPORT INFORMATION
  Report Type: Spontaneous
  Country: US (occurrence: None)
  Receive Date: 20140124
  Receipt Date: 20140124
  Transmission Date: 20141002
  Serious: Yes (Hospitalization)
  Sender: FDA-Public Use
  Company Number: None

PATIENT
  Age: 78 Year
  Sex: Male
  Weight: 79.1 kg

DRUGS (10)
  1. ERLOTINIB [Suspect]
  2. OXYCODONE [Concomitant]
  3. ALLOPURINOL [Concomitant]
  4. AZITHROMYCIN [Concomitant]
  5. DOCUSATE SODIUM\SENNOSIDES [Concomitant]
  6. CLOPIDOGREL [Concomitant]
  7. CARVEDILOL [Concomitant]
  8. GLIPIZIDE [Concomitant]
  9. ASPIRIN [Concomitant]
  10. AMLODIP [Concomitant]

REACTIONS (5)
  - Abdominal pain [None]
  - Upper gastrointestinal haemorrhage [None]
  - Gastritis [None]
  - Gastric ulcer [None]
  - Gastrointestinal candidiasis [None]
